FAERS Safety Report 12858857 (Version 10)
Quarter: 2019Q3

REPORT INFORMATION
  Report Type: Report from Study
  Country: US (occurrence: US)
  Receive Date: 20161018
  Receipt Date: 20190712
  Transmission Date: 20191004
  Serious: Yes (Hospitalization, Other)
  Sender: FDA-Public Use
  Company Number: US-ACTELION-A-US2016-143638

PATIENT
  Age: 63 Year
  Sex: Female

DRUGS (3)
  1. OPSUMIT [Suspect]
     Active Substance: MACITENTAN
     Indication: PULMONARY ARTERIAL HYPERTENSION
     Dosage: 10 MG, QD
     Route: 048
     Dates: start: 20160510
  2. VITAMIN D3 [Concomitant]
     Active Substance: CHOLECALCIFEROL
     Dosage: 1000 U, UNK
     Dates: start: 20170324
  3. ADCIRCA [Concomitant]
     Active Substance: TADALAFIL
     Dosage: 20 G, UNK
     Dates: start: 20160727

REACTIONS (13)
  - Viral infection [Unknown]
  - Hospitalisation [Not Recovered/Not Resolved]
  - Clostridium difficile infection [Unknown]
  - Pulmonary hypertension [Recovered/Resolved]
  - Acute kidney injury [Recovered/Resolved]
  - Infection [Recovered/Resolved]
  - Limb operation [Unknown]
  - Pain in extremity [Unknown]
  - Pain [Unknown]
  - Gait inability [Unknown]
  - Product dose omission [Unknown]
  - Kidney infection [Recovered/Resolved]
  - Renal disorder [Recovered/Resolved]

NARRATIVE: CASE EVENT DATE: 20180325
